FAERS Safety Report 7179118-9 (Version None)
Quarter: 2010Q4

REPORT INFORMATION
  Report Type: 
  Country: None (occurrence: None)
  Receive Date: 20101221
  Receipt Date: 20101213
  Transmission Date: 20110411
  Serious: No
  Sender: FDA-Public Use
  Company Number: US-PFIZER INC-2010170730

PATIENT
  Sex: Male
  Weight: 82 kg

DRUGS (2)
  1. XALATAN [Suspect]
     Indication: GLAUCOMA
     Dosage: 1 GTT, 1X/DAY, IN LEFT EYE
     Route: 047
  2. COSOPT [Concomitant]
     Indication: GLAUCOMA
     Dosage: 1 GTT, 2X/DAY
     Route: 047

REACTIONS (4)
  - EYE DISCHARGE [None]
  - EYE INFLAMMATION [None]
  - EYE PRURITUS [None]
  - LACRIMATION INCREASED [None]
